FAERS Safety Report 25009095 (Version 1)
Quarter: 2025Q1

REPORT INFORMATION
  Report Type: Spontaneous
  Country: US (occurrence: None)
  Receive Date: 20250225
  Receipt Date: 20250225
  Transmission Date: 20250409
  Serious: Yes (Other)
  Sender: FDA-CTU
  Company Number: None

PATIENT
  Age: 26 Year
  Weight: 78.75 kg

DRUGS (2)
  1. AFRIN [Suspect]
     Active Substance: OXYMETAZOLINE HYDROCHLORIDE
     Indication: Nasal decongestion therapy
     Dates: start: 20241114
  2. AFRIN [Suspect]
     Active Substance: OXYMETAZOLINE HYDROCHLORIDE
     Indication: Nasopharyngitis

REACTIONS (5)
  - Anxiety [None]
  - Rebound effect [None]
  - Loss of personal independence in daily activities [None]
  - Sneezing [None]
  - Insomnia [None]

NARRATIVE: CASE EVENT DATE: 20241114
